FAERS Safety Report 11273191 (Version 1)
Quarter: 2015Q3

REPORT INFORMATION
  Report Type: Spontaneous
  Country: US (occurrence: None)
  Receive Date: 20150714
  Receipt Date: 20150714
  Transmission Date: 20151125
  Serious: No
  Sender: FDA-Public Use
  Company Number: None

PATIENT
  Age: 21 Year
  Sex: Female
  Weight: 63.5 kg

DRUGS (1)
  1. SKYLA [Suspect]
     Active Substance: LEVONORGESTREL
     Dosage: UP TO 3 YEARS
     Route: 067

REACTIONS (4)
  - Vaginal haemorrhage [None]
  - Premenstrual syndrome [None]
  - Premenstrual cramps [None]
  - Acne [None]
